FAERS Safety Report 8974245 (Version 1)
Quarter: 2012Q4

REPORT INFORMATION
  Report Type: Spontaneous
  Country: US (occurrence: None)
  Receive Date: 20121217
  Receipt Date: 20121217
  Transmission Date: 20130627
  Serious: Yes (Death)
  Sender: FDA-Public Use
  Company Number: None

PATIENT

DRUGS (8)
  1. REVLIMID [Suspect]
     Indication: MULTIPLE MYELOMA
     Dosage: 25mg daily x 21d/28d orally
     Route: 048
     Dates: start: 201112, end: 201202
  2. FAMOTIDINE [Concomitant]
  3. GLIPIZIDE [Concomitant]
  4. LOSARTAN [Concomitant]
  5. FLUOXETINE [Concomitant]
  6. FLONASE [Concomitant]
  7. CLOTRIMAZOLE [Concomitant]
  8. ALBUTEROL [Concomitant]

REACTIONS (4)
  - Pneumonia aspiration [None]
  - Spinal cord compression [None]
  - Respiratory depression [None]
  - Plasma cell myeloma [None]
